FAERS Safety Report 5247647-0 (Version None)
Quarter: 2007Q1

REPORT INFORMATION
  Report Type: 
  Country: None (occurrence: None)
  Receive Date: 20070220
  Receipt Date: 20070206
  Transmission Date: 20070707
  Serious: Yes (Other)
  Sender: FDA-Public Use
  Company Number: 430049M06USA

PATIENT
  Age: 54 Year
  Sex: Female
  Weight: 59.9 kg

DRUGS (7)
  1. NOVANTRONE [Suspect]
     Indication: MULTIPLE SCLEROSIS
     Dates: end: 20060412
  2. REBIF [Suspect]
     Indication: MULTIPLE SCLEROSIS
     Dosage: 44 MCG, 3 IN 1 WEEKS, NOT REPORTED
     Dates: start: 20030101
  3. NEURONTIN [Concomitant]
  4. DIOVAN [Concomitant]
  5. LEVOTHROID [Concomitant]
  6. LIPITOR [Concomitant]
  7. LEXAPRO [Concomitant]

REACTIONS (2)
  - ATRIOVENTRICULAR BLOCK SECOND DEGREE [None]
  - EJECTION FRACTION DECREASED [None]
